FAERS Safety Report 10245014 (Version 1)
Quarter: 2014Q2

REPORT INFORMATION
  Report Type: Spontaneous
  Country: US (occurrence: US)
  Receive Date: 20140618
  Receipt Date: 20140618
  Transmission Date: 20141212
  Serious: No
  Sender: FDA-Public Use
  Company Number: US-GALDERMA-US14001494

PATIENT
  Age: 25 Year
  Sex: Male

DRUGS (3)
  1. MIRVASO (BRIMONIDINE) TOPICAL GEL, 0.33% [Suspect]
     Indication: ROSACEA
     Dosage: 0.33%
     Route: 061
     Dates: start: 20140418, end: 20140420
  2. CETAPHIL GENTLE SKIN CLEANSER [Concomitant]
     Indication: THERAPEUTIC SKIN CARE TOPICAL
     Route: 061
     Dates: start: 2008
  3. EUCERIN SENSITIVE SKIN MOISTURIZER [Concomitant]
     Indication: DRY SKIN PROPHYLAXIS
     Route: 061
     Dates: start: 2013

REACTIONS (4)
  - Rebound effect [Recovering/Resolving]
  - Feeling hot [Recovering/Resolving]
  - Flushing [Recovering/Resolving]
  - Inappropriate schedule of drug administration [Recovered/Resolved]
